FAERS Safety Report 20016062 (Version 1)
Quarter: 2021Q4

REPORT INFORMATION
  Report Type: Spontaneous
  Country: US (occurrence: None)
  Receive Date: 20211102
  Receipt Date: 20211102
  Transmission Date: 20220304
  Serious: Yes (Other)
  Sender: FDA-Public Use
  Company Number: None

PATIENT
  Age: 39 Year
  Sex: Male
  Weight: 84.06 kg

DRUGS (1)
  1. REVIA [Suspect]
     Active Substance: NALTREXONE HYDROCHLORIDE
     Indication: Drug dependence
     Dosage: FREQUENCY : DAILY;?
     Route: 048
     Dates: start: 20211031, end: 20211031

REACTIONS (4)
  - Dyspnoea [None]
  - Myalgia [None]
  - Muscle spasms [None]
  - Malaise [None]

NARRATIVE: CASE EVENT DATE: 20211031
